FAERS Safety Report 15658071 (Version 8)
Quarter: 2020Q4

REPORT INFORMATION
  Report Type: Report from Study
  Country: DE (occurrence: DE)
  Receive Date: 20181126
  Receipt Date: 20201104
  Transmission Date: 20210113
  Serious: Yes (Hospitalization)
  Sender: FDA-Public Use
  Company Number: DE-JNJFOC-20181124924

PATIENT
  Age: 19 Year
  Sex: Female
  Weight: 60 kg

DRUGS (8)
  1. LANTAREL [Suspect]
     Active Substance: METHOTREXATE SODIUM
     Route: 065
     Dates: start: 200904
  2. INFLIXIMAB, RECOMBINANT [Suspect]
     Active Substance: INFLIXIMAB
     Indication: JUVENILE IDIOPATHIC ARTHRITIS
     Route: 042
     Dates: start: 20090501, end: 20090910
  3. ADALIMUMAB [Suspect]
     Active Substance: ADALIMUMAB
     Indication: OLIGOARTHRITIS
  4. INFLIXIMAB, RECOMBINANT [Suspect]
     Active Substance: INFLIXIMAB
     Indication: OLIGOARTHRITIS
  5. ADALIMUMAB [Suspect]
     Active Substance: ADALIMUMAB
     Indication: JUVENILE IDIOPATHIC ARTHRITIS
     Route: 065
  6. LEFLUNOMIDE. [Concomitant]
     Active Substance: LEFLUNOMIDE
     Indication: OLIGOARTHRITIS
     Route: 048
     Dates: start: 20090401
  7. ENBREL [Suspect]
     Active Substance: ETANERCEPT
     Indication: JUVENILE IDIOPATHIC ARTHRITIS
     Route: 058
     Dates: start: 20070115, end: 20080421
  8. LANTAREL [Suspect]
     Active Substance: METHOTREXATE SODIUM
     Indication: JUVENILE IDIOPATHIC ARTHRITIS
     Route: 065
     Dates: start: 200603, end: 200702

REACTIONS (3)
  - Product use in unapproved indication [Unknown]
  - Cervical dysplasia [Recovered/Resolved]
  - Off label use [Unknown]

NARRATIVE: CASE EVENT DATE: 20090501
